FAERS Safety Report 7989309-2 (Version None)
Quarter: 2011Q4

REPORT INFORMATION
  Report Type: 
  Country: None (occurrence: None)
  Receive Date: 20111219
  Receipt Date: 20111208
  Transmission Date: 20120403
  Serious: Yes (Hospitalization)
  Sender: FDA-Public Use
  Company Number: US-US-EMD SERONO, INC.-7101101

PATIENT
  Sex: Female
  Weight: 64 kg

DRUGS (13)
  1. REBIF [Suspect]
     Indication: PRODUCT USED FOR UNKNOWN INDICATION
     Route: 058
  2. ZANAFLEX [Concomitant]
  3. WELCHOL [Concomitant]
  4. PRILOSEC [Concomitant]
  5. VITAMIN D [Concomitant]
  6. TOPAMAX [Concomitant]
  7. VITAMIN E [Concomitant]
  8. MAXZIDE [Concomitant]
     Dosage: 75-50
  9. NORVASC [Concomitant]
  10. EXCEDRIN SINUS HEADACHE [Concomitant]
  11. VITAMIN B-12 LOZ [Concomitant]
  12. ACETAMINOPHEN [Concomitant]
  13. ACIPHEX [Concomitant]

REACTIONS (3)
  - ALOPECIA [None]
  - COLITIS ISCHAEMIC [None]
  - DIARRHOEA [None]
